FAERS Safety Report 21303335 (Version 1)
Quarter: 2022Q3

REPORT INFORMATION
  Report Type: Other
  Country: NL (occurrence: None)
  Receive Date: 20220907
  Receipt Date: 20220907
  Transmission Date: 20221027
  Serious: No
  Sender: FDA-Public Use
  Company Number: NL-ROCHE-3174052

PATIENT
  Age: 57 Year
  Sex: Female
  Weight: 80 kg

DRUGS (5)
  1. OCRELIZUMAB [Suspect]
     Active Substance: OCRELIZUMAB
     Indication: Relapsing-remitting multiple sclerosis
     Route: 042
     Dates: start: 20190417
  2. ACETAMINOPHEN [Concomitant]
     Active Substance: ACETAMINOPHEN
     Route: 048
     Dates: start: 20220209, end: 20220209
  3. CLEMASTINE [Concomitant]
     Active Substance: CLEMASTINE
     Dates: start: 20220209, end: 20220209
  4. METHYLPREDNISOLONE [Concomitant]
     Active Substance: METHYLPREDNISOLONE
     Route: 048
     Dates: start: 20220209, end: 20220209
  5. CHOLECALCIFEROL [Concomitant]
     Active Substance: CHOLECALCIFEROL
     Indication: Prophylaxis
     Route: 048
     Dates: start: 20220208

REACTIONS (1)
  - COVID-19 [Recovered/Resolved]

NARRATIVE: CASE EVENT DATE: 20220301
